FAERS Safety Report 25890008 (Version 1)
Quarter: 2025Q4

REPORT INFORMATION
  Report Type: Spontaneous
  Country: US (occurrence: None)
  Receive Date: 20251006
  Receipt Date: 20251006
  Transmission Date: 20260117
  Serious: Yes (Death)
  Sender: FDA-CTU
  Company Number: None

PATIENT
  Age: 74 Year
  Sex: Male

DRUGS (1)
  1. LENALIDOMIDE [Suspect]
     Active Substance: LENALIDOMIDE
     Indication: Plasma cell myeloma
     Dosage: FREQUENCY : DAILY;?
     Route: 048
     Dates: start: 20250414, end: 20251005

REACTIONS (6)
  - COVID-19 pneumonia [None]
  - Pneumonia klebsiella [None]
  - Pneumonia pseudomonal [None]
  - Failure to thrive [None]
  - Subdural haematoma [None]
  - Mental status changes [None]

NARRATIVE: CASE EVENT DATE: 20251005
